FAERS Safety Report 4614720-7 (Version None)
Quarter: 2005Q2

REPORT INFORMATION
  Report Type: 
  Country: None (occurrence: None)
  Receive Date: 20050310
  Receipt Date: 20050112
  Transmission Date: 20051028
  Serious: Yes (Hospitalization)
  Sender: FDA-Public Use
  Company Number: A03200500106

PATIENT
  Age: 82 Year
  Sex: Female

DRUGS (2)
  1. ELOXATIN [Suspect]
     Indication: COLORECTAL CANCER
     Dosage: 244 MG OTHER - INTRAVENOUS NOS
     Route: 042
     Dates: start: 20050111, end: 20050111
  2. CAPECITABINE [Concomitant]

REACTIONS (2)
  - BLOOD PRESSURE INCREASED [None]
  - SWOLLEN TONGUE [None]
